FAERS Safety Report 17361854 (Version 1)
Quarter: 2020Q1

REPORT INFORMATION
  Report Type: Spontaneous
  Country: US (occurrence: US)
  Receive Date: 20200117
  Receipt Date: 20200117
  Transmission Date: 20200409
  Serious: No
  Sender: FDA-Public Use
  Company Number: None

PATIENT

DRUGS (2)
  1. VELCADE [Suspect]
     Active Substance: BORTEZOMIB
  2. BORTEZOMIB. [Suspect]
     Active Substance: BORTEZOMIB

REACTIONS (2)
  - Product label issue [None]
  - Incorrect route of product administration [None]
